FAERS Safety Report 6344007-6 (Version None)
Quarter: 2009Q3

REPORT INFORMATION
  Report Type: 
  Country: None (occurrence: None)
  Receive Date: 20090908
  Receipt Date: 20090825
  Transmission Date: 20100115
  Serious: Yes (Other)
  Sender: FDA-Public Use
  Company Number: US-PFIZER INC-2009263365

PATIENT
  Sex: Female
  Weight: 82.54 kg

DRUGS (3)
  1. DETROL LA [Suspect]
     Indication: HYPERTONIC BLADDER
     Dosage: 4 MG, 1X/DAY
     Route: 048
     Dates: start: 20030101
  2. CELEBREX [Concomitant]
  3. METHOTREXATE [Concomitant]

REACTIONS (1)
  - ROTATOR CUFF REPAIR [None]
